FAERS Safety Report 15269937 (Version 1)
Quarter: 2018Q3

REPORT INFORMATION
  Report Type: Spontaneous
  Country: US (occurrence: US)
  Receive Date: 20180813
  Receipt Date: 20180813
  Transmission Date: 20181010
  Serious: No
  Sender: FDA-Public Use
  Company Number: US-PFIZER INC-2018316920

PATIENT
  Age: 66 Year
  Sex: Male

DRUGS (11)
  1. LYRICA [Suspect]
     Active Substance: PREGABALIN
     Indication: NEUROPATHY PERIPHERAL
  2. PROTONIX [Concomitant]
     Active Substance: PANTOPRAZOLE SODIUM
     Dosage: UNK
  3. PHILLIPS MAGNESIA [Concomitant]
     Dosage: 500 MG, UNK
  4. VITAMIN B5 [Concomitant]
     Active Substance: PANTOTHENIC ACID
     Dosage: 100 MG, UNK
  5. PROBIOTIC [Concomitant]
     Active Substance: PROBIOTICS NOS
     Dosage: UNK [30 BILLION THE GOOD BACTERIA]
  6. LYRICA [Suspect]
     Active Substance: PREGABALIN
     Indication: TREMOR
  7. VITAMIN B12 [Concomitant]
     Active Substance: CYANOCOBALAMIN
     Dosage: 500 MG, UNK
  8. LYRICA [Suspect]
     Active Substance: PREGABALIN
     Indication: FIBROMYALGIA
     Dosage: 75 MG, 1X/DAY
     Route: 048
     Dates: start: 20180805
  9. VITAMIN C [Concomitant]
     Active Substance: ASCORBIC ACID
     Dosage: 250 MG, UNK
  10. VITAMIN B12 [Concomitant]
     Active Substance: CYANOCOBALAMIN
     Dosage: 5000 MG, UNK
  11. MAGNESIUM [Concomitant]
     Active Substance: MAGNESIUM
     Dosage: 50 MG, UNK

REACTIONS (4)
  - Intentional product use issue [Unknown]
  - Expired product administered [Unknown]
  - Anxiety [Unknown]
  - Dizziness [Unknown]

NARRATIVE: CASE EVENT DATE: 20180805
